FAERS Safety Report 8881090 (Version 1)
Quarter: 2012Q4

REPORT INFORMATION
  Report Type: 
  Country: FR (occurrence: FR)
  Receive Date: 20121101
  Receipt Date: 20121101
  Transmission Date: 20130627
  Serious: Yes (Other)
  Sender: FDA-Public Use
  Company Number: FR-ASTRAZENECA-2012SE82484

PATIENT
  Sex: Male

DRUGS (1)
  1. INEXIUM [Suspect]
     Route: 048

REACTIONS (1)
  - Prostate cancer [Not Recovered/Not Resolved]
